FAERS Safety Report 19428354 (Version 1)
Quarter: 2021Q2

REPORT INFORMATION
  Report Type: Spontaneous
  Country: DE (occurrence: DE)
  Receive Date: 20210617
  Receipt Date: 20210617
  Transmission Date: 20210717
  Serious: Yes (Hospitalization, Other)
  Sender: FDA-Public Use
  Company Number: DE-BEH-2021132705

PATIENT
  Sex: Male
  Weight: 85 kg

DRUGS (14)
  1. KEPPRA [Suspect]
     Active Substance: LEVETIRACETAM
     Indication: EPILEPSY
     Route: 065
     Dates: start: 20160727, end: 20170710
  2. FLUDARABINE PHOSPHATE. [Suspect]
     Active Substance: FLUDARABINE PHOSPHATE
     Indication: CHRONIC LYMPHOCYTIC LEUKAEMIA
     Dosage: 49.5 MILLIGRAM
     Route: 042
     Dates: start: 20141118, end: 20150407
  3. PRIVIGEN [Suspect]
     Active Substance: HUMAN IMMUNOGLOBULIN G
     Indication: PRODUCT USED FOR UNKNOWN INDICATION
     Dosage: 20 MILLIGRAM
     Route: 065
     Dates: start: 20160323
  4. URSOFALK [Suspect]
     Active Substance: URSODIOL
     Indication: PRODUCT USED FOR UNKNOWN INDICATION
     Route: 065
     Dates: start: 201602, end: 201603
  5. OBINUTUZUMAB. [Suspect]
     Active Substance: OBINUTUZUMAB
     Dosage: 1000 MILLIGRAM
     Route: 042
     Dates: start: 20150113
  6. TOPIRAMAT [Suspect]
     Active Substance: TOPIRAMATE
     Indication: EPILEPSY
     Route: 065
     Dates: start: 2018, end: 20200221
  7. OBINUTUZUMAB. [Suspect]
     Active Substance: OBINUTUZUMAB
     Dosage: 1000 MILLIGRAM
     Route: 042
     Dates: start: 20150407
  8. OBINUTUZUMAB. [Suspect]
     Active Substance: OBINUTUZUMAB
     Dosage: 1000 MILLIGRAM
     Route: 042
     Dates: start: 20141118, end: 20150407
  9. OBINUTUZUMAB. [Suspect]
     Active Substance: OBINUTUZUMAB
     Dosage: 1000 MILLIGRAM
     Route: 042
     Dates: start: 201502
  10. VIMPAT [Suspect]
     Active Substance: LACOSAMIDE
     Indication: EPILEPSY
     Route: 065
     Dates: start: 201706, end: 20200221
  11. KIOVIG [Suspect]
     Active Substance: HUMAN IMMUNOGLOBULIN G
     Indication: IMMUNOGLOBULINS DECREASED
     Route: 065
  12. CYCLOPHOSPHAMID [Suspect]
     Active Substance: CYCLOPHOSPHAMIDE
     Indication: CHRONIC LYMPHOCYTIC LEUKAEMIA
     Dosage: 495 MILLIGRAM
     Route: 042
     Dates: start: 20141118, end: 20150407
  13. OBINUTUZUMAB. [Suspect]
     Active Substance: OBINUTUZUMAB
     Dosage: 1000 MILLIGRAM
     Route: 042
     Dates: start: 20141216
  14. OBINUTUZUMAB. [Suspect]
     Active Substance: OBINUTUZUMAB
     Indication: CHRONIC LYMPHOCYTIC LEUKAEMIA
     Dosage: 1000 MILLIGRAM
     Route: 042
     Dates: start: 20150310

REACTIONS (27)
  - Oedema peripheral [Unknown]
  - Benign prostatic hyperplasia [Unknown]
  - Muscle twitching [Unknown]
  - Taste disorder [Unknown]
  - Dehydration [Recovered/Resolved]
  - Skin cancer [Unknown]
  - Vitamin D deficiency [Unknown]
  - Decreased appetite [Unknown]
  - Back pain [Unknown]
  - Eye irritation [Unknown]
  - Dry mouth [Unknown]
  - Peroneal nerve palsy [Unknown]
  - Pruritus [Unknown]
  - Infection [Unknown]
  - Initial insomnia [Unknown]
  - Depression [Unknown]
  - Organic brain syndrome [Unknown]
  - Eructation [Unknown]
  - Bladder hypertrophy [Unknown]
  - Pollakiuria [Not Recovered/Not Resolved]
  - Eczema [Unknown]
  - Urge incontinence [Not Recovered/Not Resolved]
  - Rhinorrhoea [Unknown]
  - Osteoarthritis [Not Recovered/Not Resolved]
  - Pyrexia [Recovered/Resolved]
  - Pneumonia [Recovered/Resolved]
  - Pain [Unknown]

NARRATIVE: CASE EVENT DATE: 2018
